FAERS Safety Report 8842601 (Version 1)
Quarter: 2012Q4

REPORT INFORMATION
  Report Type: Report from Study
  Country: CA (occurrence: CA)
  Receive Date: 20121016
  Receipt Date: 20121016
  Transmission Date: 20130627
  Serious: Yes (Other)
  Sender: FDA-Public Use
  Company Number: CA-JNJFOC-20121003554

PATIENT
  Age: 27 None
  Sex: Female
  Weight: 72 kg

DRUGS (3)
  1. REMICADE [Suspect]
     Indication: CROHN^S DISEASE
     Route: 042
     Dates: start: 20120117
  2. CITALOPRAM [Concomitant]
     Route: 065
  3. PARIET [Concomitant]
     Route: 065

REACTIONS (5)
  - Migraine [Unknown]
  - Pharyngitis streptococcal [Unknown]
  - Skin exfoliation [Unknown]
  - Crohn^s disease [Unknown]
  - Secretion discharge [Unknown]
